FAERS Safety Report 13376895 (Version 2)
Quarter: 2017Q2

REPORT INFORMATION
  Report Type: Report from Study
  Country: FR (occurrence: FR)
  Receive Date: 20170328
  Receipt Date: 20170412
  Transmission Date: 20170830
  Serious: Yes (Other)
  Sender: FDA-Public Use
  Company Number: FR-GILEAD-2017-0263643

PATIENT
  Age: 70 Year
  Sex: Male

DRUGS (5)
  1. BACTRIM [Concomitant]
     Active Substance: SULFAMETHOXAZOLE\TRIMETHOPRIM
  2. IDELALISIB [Suspect]
     Active Substance: IDELALISIB
     Dosage: 200 MG, QD
     Route: 065
     Dates: start: 20160618, end: 20160718
  3. RITUXIMAB [Concomitant]
     Active Substance: RITUXIMAB
  4. IDELALISIB [Suspect]
     Active Substance: IDELALISIB
     Indication: CHRONIC LYMPHOCYTIC LEUKAEMIA
     Dosage: 150 MG, BID
     Route: 065
     Dates: start: 201605, end: 20160610
  5. ZELITREX [Concomitant]
     Active Substance: VALACYCLOVIR HYDROCHLORIDE

REACTIONS (3)
  - Neutropenia [Unknown]
  - Disease progression [Unknown]
  - Bone marrow infiltration [Not Recovered/Not Resolved]
